FAERS Safety Report 10578068 (Version 1)
Quarter: 2014Q4

REPORT INFORMATION
  Report Type: Spontaneous
  Country: PH (occurrence: PH)
  Receive Date: 20141112
  Receipt Date: 20141112
  Transmission Date: 20150529
  Serious: Yes (Death, Hospitalization, Other)
  Sender: FDA-Public Use
  Company Number: PH-009507513-1411PHL004342

PATIENT
  Sex: Female

DRUGS (1)
  1. JANUMET [Suspect]
     Active Substance: METFORMIN HYDROCHLORIDE\SITAGLIPTIN PHOSPHATE
     Indication: DIABETES MELLITUS
     Dosage: ONE TABLET, ONCE A DAY
     Route: 048

REACTIONS (4)
  - Productive cough [Unknown]
  - Myocardial infarction [Fatal]
  - Inappropriate schedule of drug administration [Unknown]
  - Dyspnoea [Unknown]
